FAERS Safety Report 5719361-6 (Version None)
Quarter: 2008Q2

REPORT INFORMATION
  Report Type: 
  Country: None (occurrence: None)
  Receive Date: 20080428
  Receipt Date: 20080421
  Transmission Date: 20081010
  Serious: Yes (Hospitalization)
  Sender: FDA-Public Use
  Company Number: PHHY2008BE05500

PATIENT
  Age: 58 Year
  Sex: Female

DRUGS (2)
  1. ZOMETA [Suspect]
     Indication: LUNG CANCER METASTATIC
     Dosage: UNK, UNK
     Route: 065
     Dates: start: 20080225
  2. TAXOTERE [Concomitant]

REACTIONS (7)
  - ANOREXIA [None]
  - CONFUSIONAL STATE [None]
  - HYPOCALCAEMIA [None]
  - LETHARGY [None]
  - MUSCULAR WEAKNESS [None]
  - RENAL IMPAIRMENT [None]
  - VOMITING [None]
